FAERS Safety Report 17445758 (Version 1)
Quarter: 2020Q1

REPORT INFORMATION
  Report Type: Spontaneous
  Country: US (occurrence: US)
  Receive Date: 20200221
  Receipt Date: 20200221
  Transmission Date: 20200409
  Serious: Yes (Life-Threatening, Other)
  Sender: FDA-Public Use
  Company Number: US-SA-2020SA046324

PATIENT
  Sex: Female

DRUGS (1)
  1. AUBAGIO [Suspect]
     Active Substance: TERIFLUNOMIDE
     Dosage: UNK

REACTIONS (7)
  - Cardiac disorder [Unknown]
  - Diabetes mellitus [Unknown]
  - Onychoclasis [Unknown]
  - Alopecia [Unknown]
  - Cerebrovascular accident [Unknown]
  - Fall [Unknown]
  - Hepatic enzyme increased [Unknown]
